FAERS Safety Report 9234454 (Version 1)
Quarter: 2013Q2

REPORT INFORMATION
  Report Type: Spontaneous
  Country: US (occurrence: US)
  Receive Date: 20130416
  Receipt Date: 20130416
  Transmission Date: 20140414
  Serious: No
  Sender: FDA-Public Use
  Company Number: US-BANPHARM-20120063

PATIENT
  Age: 81 Year
  Sex: Female
  Weight: 79.54 kg

DRUGS (4)
  1. ALEVE LIQUID GELS 220 MG [Suspect]
     Dosage: 440 MG
     Route: 048
     Dates: start: 20120809
  2. BLOOD PRESSURE PILL [Concomitant]
     Dosage: UNK
  3. WATER PILL [Concomitant]
     Dosage: UNK
     Route: 048
  4. NON IDENTIFIED SUSPECT [Suspect]
     Dosage: UNK

REACTIONS (2)
  - Dizziness [Recovered/Resolved]
  - Foreign body [Recovered/Resolved]
